FAERS Safety Report 4283157-5 (Version None)
Quarter: 2004Q1

REPORT INFORMATION
  Report Type: 
  Country: None (occurrence: None)
  Receive Date: 20040129
  Receipt Date: 20040114
  Transmission Date: 20041129
  Serious: Yes (Death)
  Sender: FDA-Public Use
  Company Number: 2004GB00089

PATIENT
  Age: 26 Year
  Sex: Female

DRUGS (3)
  1. SEROQUEL [Suspect]
     Dosage: 700 MG DAILY PO
     Route: 048
     Dates: start: 20030701
  2. PAIN KILLERS [Concomitant]
  3. ANTI DIABETICS [Concomitant]

REACTIONS (2)
  - EMBOLISM [None]
  - PULMONARY EMBOLISM [None]
